FAERS Safety Report 14815226 (Version 2)
Quarter: 2018Q3

REPORT INFORMATION
  Report Type: Spontaneous
  Country: DE (occurrence: DE)
  Receive Date: 20180426
  Receipt Date: 20180810
  Transmission Date: 20181010
  Serious: Yes (Life-Threatening, Hospitalization)
  Sender: FDA-Public Use
  Company Number: DE-ASTRAZENECA-2018SE51713

PATIENT
  Age: 21 Year
  Sex: Male

DRUGS (12)
  1. IVABRADINE [Concomitant]
     Active Substance: IVABRADINE
  2. SCOPOLAMIN [Concomitant]
     Active Substance: SCOPOLAMINE
  3. ESOMEPRAZOLE [Suspect]
     Active Substance: ESOMEPRAZOLE
     Dosage: 40.0MG UNKNOWN
     Route: 048
  4. LEVETIRACETAM. [Concomitant]
     Active Substance: LEVETIRACETAM
  5. LINEZOLID. [Interacting]
     Active Substance: LINEZOLID
     Indication: PNEUMONIA STAPHYLOCOCCAL
     Route: 042
     Dates: start: 20180315, end: 20180318
  6. NALOXONE, TILIDINE [Concomitant]
     Active Substance: NALOXONE HYDROCHLORIDE\TILIDINE HYDROCHLORIDE
     Dosage: 10 DROPS
  7. PREDNISOLON [Concomitant]
     Active Substance: PREDNISOLONE
  8. COTRIMOXAZOL [Concomitant]
     Active Substance: SULFAMETHOXAZOLE\TRIMETHOPRIM
     Route: 042
     Dates: start: 20180315, end: 20180319
  9. BACLOFEN. [Concomitant]
     Active Substance: BACLOFEN
  10. LORAZEPAM. [Concomitant]
     Active Substance: LORAZEPAM
  11. ESCITALOPRAM [Interacting]
     Active Substance: ESCITALOPRAM OXALATE
     Route: 065
  12. L?THYROXIN [Concomitant]
     Active Substance: LEVOTHYROXINE SODIUM
     Dosage: 75.0UG UNKNOWN

REACTIONS (4)
  - Drug interaction [Not Recovered/Not Resolved]
  - Status epilepticus [Not Recovered/Not Resolved]
  - Serotonin syndrome [Not Recovered/Not Resolved]
  - Body temperature increased [Not Recovered/Not Resolved]

NARRATIVE: CASE EVENT DATE: 20180317
